FAERS Safety Report 14337210 (Version 4)
Quarter: 2018Q1

REPORT INFORMATION
  Report Type: Spontaneous
  Country: AT (occurrence: AT)
  Receive Date: 20171229
  Receipt Date: 20180328
  Transmission Date: 20180509
  Serious: Yes (Hospitalization, Other)
  Sender: FDA-Public Use
  Company Number: AT-JNJFOC-20171000971

PATIENT
  Age: 76 Year
  Sex: Female

DRUGS (32)
  1. RISPERDAL [Suspect]
     Active Substance: RISPERIDONE
     Indication: PRODUCT USED FOR UNKNOWN INDICATION
     Route: 048
     Dates: start: 20170803, end: 20170821
  2. DULOXETINE. [Interacting]
     Active Substance: DULOXETINE
     Indication: PRODUCT USED FOR UNKNOWN INDICATION
     Route: 048
     Dates: start: 20170809, end: 20170816
  3. XANOR [Interacting]
     Active Substance: ALPRAZOLAM
     Indication: PRODUCT USED FOR UNKNOWN INDICATION
     Route: 048
     Dates: start: 20170816, end: 20170816
  4. MOLAXOLE [Concomitant]
     Active Substance: POLYETHYLENE GLYCOL 3350\POTASSIUM CHLORIDE\SODIUM BICARBONATE\SODIUM CHLORIDE
     Route: 065
     Dates: start: 20170802
  5. MONURIL [Concomitant]
     Active Substance: FOSFOMYCIN SODIUM
     Route: 065
     Dates: start: 20170805, end: 20170805
  6. SODIUM CHLORIDE. [Concomitant]
     Active Substance: SODIUM CHLORIDE
     Route: 048
     Dates: start: 20170807, end: 20170821
  7. MIRTABENE [Interacting]
     Active Substance: MIRTAZAPINE
     Indication: PRODUCT USED FOR UNKNOWN INDICATION
     Route: 048
     Dates: start: 20170701
  8. ALNA [Concomitant]
     Active Substance: TAMSULOSIN HYDROCHLORIDE
     Dosage: ALNA RET
     Route: 065
     Dates: start: 20170823
  9. DULOXETINE. [Interacting]
     Active Substance: DULOXETINE
     Indication: PRODUCT USED FOR UNKNOWN INDICATION
     Route: 048
     Dates: start: 20170817, end: 20170819
  10. XANOR [Interacting]
     Active Substance: ALPRAZOLAM
     Indication: PRODUCT USED FOR UNKNOWN INDICATION
     Route: 048
     Dates: start: 20170809, end: 20170809
  11. TRITTICO [Concomitant]
     Active Substance: TRAZODONE HYDROCHLORIDE
     Route: 065
     Dates: start: 20170823
  12. SODIUM CHLORIDE. [Concomitant]
     Active Substance: SODIUM CHLORIDE
     Route: 048
     Dates: start: 20170802, end: 20170805
  13. RISPERDAL [Suspect]
     Active Substance: RISPERIDONE
     Indication: PRODUCT USED FOR UNKNOWN INDICATION
     Route: 048
     Dates: start: 20170822
  14. DULOXETINE. [Interacting]
     Active Substance: DULOXETINE
     Indication: PRODUCT USED FOR UNKNOWN INDICATION
     Route: 048
     Dates: start: 20170805, end: 20170808
  15. SELEXID [Concomitant]
     Route: 048
     Dates: start: 20170816, end: 20170816
  16. NEUROMULTIVIT [Concomitant]
     Active Substance: CYANOCOBALAMIN\PYRIDOXINE\THIAMINE
     Route: 048
     Dates: start: 20170802, end: 20170819
  17. XANOR [Interacting]
     Active Substance: ALPRAZOLAM
     Indication: PRODUCT USED FOR UNKNOWN INDICATION
     Route: 048
     Dates: start: 20170810, end: 20170810
  18. TRITTICO [Concomitant]
     Active Substance: TRAZODONE HYDROCHLORIDE
     Dosage: TRITTICO RET
     Route: 065
     Dates: start: 20170817, end: 20170822
  19. SODIUM CHLORIDE. [Concomitant]
     Active Substance: SODIUM CHLORIDE
     Route: 048
     Dates: start: 20170822
  20. XANOR [Interacting]
     Active Substance: ALPRAZOLAM
     Indication: PRODUCT USED FOR UNKNOWN INDICATION
     Route: 048
     Dates: start: 20170811, end: 20170813
  21. SELEXID [Concomitant]
     Route: 048
     Dates: start: 20170828, end: 20170828
  22. RISPERDAL [Suspect]
     Active Substance: RISPERIDONE
     Indication: PRODUCT USED FOR UNKNOWN INDICATION
     Route: 048
     Dates: end: 20170731
  23. XANOR [Interacting]
     Active Substance: ALPRAZOLAM
     Indication: PRODUCT USED FOR UNKNOWN INDICATION
     Route: 048
     Dates: start: 20170814, end: 20170815
  24. ANTIBIOPHILUS [Concomitant]
     Route: 065
     Dates: start: 20170811, end: 20170811
  25. ANTIBIOPHILUS [Concomitant]
     Route: 065
     Dates: start: 20170812, end: 20170816
  26. SELEXID [Concomitant]
     Route: 048
     Dates: start: 20170817, end: 20170827
  27. ATARAX [Concomitant]
     Active Substance: HYDROXYZINE HYDROCHLORIDE
     Route: 065
     Dates: start: 20170824
  28. SODIUM CHLORIDE. [Concomitant]
     Active Substance: SODIUM CHLORIDE
     Route: 048
     Dates: start: 20170806, end: 20170806
  29. RISPERDAL [Suspect]
     Active Substance: RISPERIDONE
     Indication: PRODUCT USED FOR UNKNOWN INDICATION
     Route: 048
     Dates: start: 20170801, end: 20170802
  30. DULOXETINE. [Interacting]
     Active Substance: DULOXETINE
     Indication: PRODUCT USED FOR UNKNOWN INDICATION
     Route: 048
     Dates: start: 20170802, end: 20170804
  31. MIRTABENE [Interacting]
     Active Substance: MIRTAZAPINE
     Indication: PRODUCT USED FOR UNKNOWN INDICATION
     Route: 048
     Dates: start: 20170801, end: 20170816
  32. XANOR [Interacting]
     Active Substance: ALPRAZOLAM
     Indication: PRODUCT USED FOR UNKNOWN INDICATION
     Route: 048
     Dates: start: 20170802, end: 20170808

REACTIONS (5)
  - Urinary retention [Recovered/Resolved]
  - Urinary tract infection staphylococcal [Recovered/Resolved]
  - Blood pressure increased [Unknown]
  - Drug interaction [Recovered/Resolved]
  - Blood glucose increased [Recovered/Resolved]

NARRATIVE: CASE EVENT DATE: 20170807
